FAERS Safety Report 16696420 (Version 2)
Quarter: 2019Q3

REPORT INFORMATION
  Report Type: Spontaneous
  Country: US (occurrence: US)
  Receive Date: 20190813
  Receipt Date: 20190816
  Transmission Date: 20191004
  Serious: No
  Sender: FDA-Public Use
  Company Number: US-JNJFOC-20190813833

PATIENT
  Age: 70 Year
  Sex: Male

DRUGS (7)
  1. IMBRUVICA [Suspect]
     Active Substance: IBRUTINIB
     Indication: NODAL MARGINAL ZONE B-CELL LYMPHOMA
     Route: 048
     Dates: start: 20190801
  2. CALCIUM [Concomitant]
     Active Substance: CALCIUM
  3. DOXYCYCLINE. [Concomitant]
     Active Substance: DOXYCYCLINE
     Dosage: 100 MG, UNK
  4. IMBRUVICA [Suspect]
     Active Substance: IBRUTINIB
     Indication: LYMPHOMA
     Route: 048
     Dates: start: 20190803
  5. VITAMIN D [Concomitant]
     Active Substance: VITAMIN D NOS
  6. ZYRTEC [Concomitant]
     Active Substance: CETIRIZINE HYDROCHLORIDE
     Indication: RESPIRATORY DISORDER
     Dosage: UNK, QD
  7. FLAXSEED [Concomitant]
     Active Substance: FLAX SEED

REACTIONS (5)
  - Fatigue [Unknown]
  - Faeces soft [Unknown]
  - Nausea [Unknown]
  - Rhinalgia [Not Recovered/Not Resolved]
  - Rosacea [Not Recovered/Not Resolved]

NARRATIVE: CASE EVENT DATE: 20190806
